FAERS Safety Report 8450319-2 (Version None)
Quarter: 2012Q2

REPORT INFORMATION
  Report Type: 
  Country: None (occurrence: None)
  Receive Date: 20120620
  Receipt Date: 20120607
  Transmission Date: 20120825
  Serious: Yes (Hospitalization, Other)
  Sender: FDA-Public Use
  Company Number: JP-VERTEX PHARMACEUTICALS INC.-AE-2012-008763

PATIENT
  Age: 55 Year
  Sex: Male

DRUGS (7)
  1. TOWART L [Concomitant]
     Route: 048
  2. TELAVIC (TELAPREVIR) [Suspect]
     Route: 048
     Dates: start: 20120510
  3. RIBAVIRIN [Concomitant]
     Route: 048
     Dates: start: 20120517
  4. GASMOTIN [Concomitant]
     Route: 048
     Dates: start: 20120414
  5. RIBAVIRIN [Concomitant]
     Route: 048
     Dates: start: 20120414, end: 20120516
  6. TELAVIC (TELAPREVIR) [Suspect]
     Indication: HEPATITIS C
     Route: 048
     Dates: start: 20120414, end: 20120509
  7. PEGINTERFERON ALFA-2B [Concomitant]
     Dates: start: 20120414

REACTIONS (2)
  - DECREASED APPETITE [None]
  - ERYTHEMA MULTIFORME [None]
